FAERS Safety Report 4581352-9 (Version None)
Quarter: 2005Q1

REPORT INFORMATION
  Report Type: 
  Country: None (occurrence: None)
  Receive Date: 20050214
  Receipt Date: 20041005
  Transmission Date: 20050727
  Serious: Yes (Hospitalization, Other)
  Sender: FDA-Public Use
  Company Number: US-GLAXOSMITHKLINE-A0528506A

PATIENT
  Age: 52 Year
  Sex: Female
  Weight: 80 kg

DRUGS (2)
  1. LAMICTAL [Suspect]
     Indication: BIPOLAR DISORDER
     Route: 048
  2. CELEXA [Concomitant]
     Dosage: 40MG PER DAY
     Route: 048

REACTIONS (3)
  - MANIA [None]
  - PRURITUS [None]
  - RASH MACULO-PAPULAR [None]
